FAERS Safety Report 8289920-8 (Version None)
Quarter: 2012Q2

REPORT INFORMATION
  Report Type: 
  Country: None (occurrence: None)
  Receive Date: 20120417
  Receipt Date: 20120406
  Transmission Date: 20120825
  Serious: Yes (Hospitalization, Other)
  Sender: FDA-Public Use
  Company Number: FR-ROCHE-1057628

PATIENT
  Age: 77 Year
  Sex: Female

DRUGS (19)
  1. KALEORID LP [Concomitant]
  2. LORAZEPAM [Concomitant]
  3. XELODA [Suspect]
     Indication: GASTRIC CANCER
     Route: 048
     Dates: start: 20120208, end: 20120222
  4. HERCEPTIN [Suspect]
     Dates: start: 20120229
  5. CISPLATIN [Suspect]
     Route: 042
     Dates: start: 20120229
  6. ZOFRAN [Concomitant]
  7. XELODA [Suspect]
     Route: 048
     Dates: start: 20120229, end: 20120314
  8. HERCEPTIN [Suspect]
     Indication: GASTRIC CANCER
     Dates: start: 20120208, end: 20120229
  9. XENETIX [Concomitant]
  10. BISOPROLOL FUMARATE AND HYDROCHLOROTHIAZIDE [Concomitant]
  11. TRAMADOL HCL [Concomitant]
  12. EMEND [Suspect]
     Indication: VOMITING
     Dosage: ON DAY 1, 2 AND 3 OF 14 DAY CYCLE
     Route: 048
     Dates: start: 20120208, end: 20120302
  13. ALLOPURINOL [Concomitant]
  14. NEXIUM [Concomitant]
  15. ACETAMINOPHEN [Concomitant]
  16. CISPLATIN [Suspect]
     Indication: PRODUCT USED FOR UNKNOWN INDICATION
     Route: 042
     Dates: start: 20120208, end: 20120229
  17. CORDARONE [Concomitant]
     Dates: start: 20111115
  18. IPERTEN [Concomitant]
  19. LOVENOX [Concomitant]

REACTIONS (3)
  - NEUTROPENIA [None]
  - NEUTROPENIC COLITIS [None]
  - DIARRHOEA [None]
